FAERS Safety Report 10277094 (Version 1)
Quarter: 2014Q3

REPORT INFORMATION
  Report Type: Spontaneous
  Country: IT (occurrence: IT)
  Receive Date: 20140703
  Receipt Date: 20140703
  Transmission Date: 20150326
  Serious: Yes (Death, Hospitalization)
  Sender: FDA-Public Use
  Company Number: IT-VIIV HEALTHCARE LIMITED-B1010145A

PATIENT
  Age: 61 Year
  Sex: Male

DRUGS (3)
  1. RETROVIR [Suspect]
     Active Substance: ZIDOVUDINE
     Indication: HIV INFECTION
     Dosage: 500MG PER DAY
     Route: 048
     Dates: start: 20090101, end: 20140401
  2. ENOXAPARIN [Suspect]
     Active Substance: ENOXAPARIN
     Indication: THROMBOPHLEBITIS
     Dosage: 4000UNIT PER DAY
     Route: 058
     Dates: start: 20131001, end: 20140401
  3. LINEZOLID. [Suspect]
     Active Substance: LINEZOLID
     Indication: OSTEOMYELITIS CHRONIC
     Dosage: 600MG PER DAY
     Route: 048
     Dates: start: 20130401, end: 20140401

REACTIONS (9)
  - Bone marrow failure [Unknown]
  - Anaemia [Unknown]
  - Splenic infarction [Fatal]
  - Leukopenia [Unknown]
  - Pyrexia [Unknown]
  - Multi-organ failure [Fatal]
  - Pancytopenia [Fatal]
  - Thrombocytopenia [Unknown]
  - Epistaxis [Unknown]

NARRATIVE: CASE EVENT DATE: 201404
